FAERS Safety Report 9385992 (Version 1)
Quarter: 2013Q3

REPORT INFORMATION
  Report Type: Report from Study
  Country: ES (occurrence: ES)
  Receive Date: 20130705
  Receipt Date: 20130705
  Transmission Date: 20140515
  Serious: Yes (Hospitalization)
  Sender: FDA-Public Use
  Company Number: ES-BAXTER-2013BAX025177

PATIENT
  Age: 2 Year
  Sex: Female

DRUGS (9)
  1. TRONOXAL 1G INYECTABLE [Suspect]
     Indication: SARCOMA
     Route: 042
     Dates: start: 20130530, end: 20130531
  2. TRONOXAL 1G INYECTABLE [Suspect]
     Route: 042
     Dates: start: 20130531
  3. ENDOXAN [Suspect]
     Indication: SARCOMA
     Route: 042
  4. VINCRISTINE [Suspect]
     Indication: SARCOMA
     Route: 042
     Dates: start: 20130530
  5. VINCRISTINE [Suspect]
     Route: 042
     Dates: start: 20130620
  6. DACTINOMYCIN [Suspect]
     Indication: SARCOMA
     Route: 042
     Dates: start: 20130530
  7. DOXORUBICIN HCL [Suspect]
     Indication: SARCOMA
     Route: 042
     Dates: start: 20130530
  8. DOXORUBICIN HCL [Suspect]
     Route: 042
     Dates: start: 20130621
  9. ONDANSETRON [Concomitant]
     Indication: PRODUCT USED FOR UNKNOWN INDICATION
     Route: 065
     Dates: start: 20130620, end: 20130622

REACTIONS (3)
  - Encephalopathy [Recovered/Resolved]
  - Hyponatraemia [Recovered/Resolved]
  - Encephalopathy [Recovered/Resolved]
